FAERS Safety Report 10263073 (Version 16)
Quarter: 2015Q2

REPORT INFORMATION
  Report Type: Report from Study
  Country: US (occurrence: US)
  Receive Date: 20140626
  Receipt Date: 20150409
  Transmission Date: 20150821
  Serious: Yes (Disabling, Other)
  Sender: FDA-Public Use
  Company Number: US-SA-2014SA001234

PATIENT
  Age: 37 Year
  Sex: Female

DRUGS (4)
  1. AUBAGIO [Suspect]
     Active Substance: TERIFLUNOMIDE
     Indication: MULTIPLE SCLEROSIS
     Route: 048
     Dates: start: 20130424
  2. AUBAGIO [Suspect]
     Active Substance: TERIFLUNOMIDE
     Indication: MULTIPLE SCLEROSIS
     Route: 048
     Dates: start: 2015
  3. AUBAGIO [Suspect]
     Active Substance: TERIFLUNOMIDE
     Indication: MULTIPLE SCLEROSIS
     Route: 048
     Dates: start: 20140424
  4. AUBAGIO [Suspect]
     Active Substance: TERIFLUNOMIDE
     Indication: MULTIPLE SCLEROSIS
     Route: 048
     Dates: start: 20141006, end: 20150125

REACTIONS (37)
  - Unevaluable event [Not Recovered/Not Resolved]
  - Alopecia [Not Recovered/Not Resolved]
  - Crying [Unknown]
  - Eye disorder [Unknown]
  - Contusion [Unknown]
  - Fatigue [Unknown]
  - Nasopharyngitis [Unknown]
  - Ophthalmoplegia [Unknown]
  - Memory impairment [Unknown]
  - Head injury [Unknown]
  - Ear infection [Unknown]
  - Gait disturbance [Unknown]
  - Gait disturbance [Unknown]
  - Fall [Unknown]
  - Depressed mood [Unknown]
  - Pollakiuria [Not Recovered/Not Resolved]
  - Malaise [Unknown]
  - Vision blurred [Not Recovered/Not Resolved]
  - Headache [Unknown]
  - Diarrhoea [Not Recovered/Not Resolved]
  - Pain in extremity [Unknown]
  - Paraesthesia [Unknown]
  - Arthralgia [Unknown]
  - Muscular weakness [Unknown]
  - Nasal congestion [Unknown]
  - Myalgia [Unknown]
  - Condition aggravated [Unknown]
  - Balance disorder [Unknown]
  - Impaired driving ability [Unknown]
  - Multiple sclerosis relapse [Unknown]
  - Impaired work ability [Unknown]
  - Hypoaesthesia [Unknown]
  - Drug ineffective [Unknown]
  - Balance disorder [Unknown]
  - Dyskinesia [Unknown]
  - Urinary incontinence [Not Recovered/Not Resolved]
  - Abdominal discomfort [Unknown]

NARRATIVE: CASE EVENT DATE: 2014
